FAERS Safety Report 7277796-7 (Version None)
Quarter: 2011Q1

REPORT INFORMATION
  Report Type: 
  Country: None (occurrence: None)
  Receive Date: 20110207
  Receipt Date: 20110127
  Transmission Date: 20110831
  Serious: Yes (Hospitalization)
  Sender: FDA-Public Use
  Company Number: JP-ASTRAZENECA-2011SE05768

PATIENT
  Age: 80 Year
  Sex: Male

DRUGS (2)
  1. SEROQUEL [Suspect]
     Route: 048
     Dates: start: 20100629
  2. SEROQUEL [Suspect]
     Route: 048
     Dates: start: 20100601, end: 20100628

REACTIONS (2)
  - CEREBRAL HAEMORRHAGE [None]
  - ACUTE MYOCARDIAL INFARCTION [None]
